FAERS Safety Report 9472577 (Version 1)
Quarter: 2013Q3

REPORT INFORMATION
  Report Type: Spontaneous
  Country: US (occurrence: None)
  Receive Date: 20130821
  Receipt Date: 20130821
  Transmission Date: 20140515
  Serious: Yes (Hospitalization, Other)
  Sender: FDA-Public Use
  Company Number: None

PATIENT
  Age: 65 Year
  Sex: Male
  Weight: 88 kg

DRUGS (2)
  1. AMANTADINE [Suspect]
     Indication: PARKINSON^S DISEASE
     Route: 048
  2. CLOZAPINE [Suspect]
     Dosage: NIGHTLY
     Route: 048

REACTIONS (4)
  - Hallucination [None]
  - Mental status changes [None]
  - Leukopenia [None]
  - Neutrophil count decreased [None]
